FAERS Safety Report 10514099 (Version 3)
Quarter: 2015Q2

REPORT INFORMATION
  Report Type: Spontaneous
  Country: US (occurrence: US)
  Receive Date: 20141013
  Receipt Date: 20150515
  Transmission Date: 20150821
  Serious: Yes (Death, Hospitalization, Other)
  Sender: FDA-Public Use
  Company Number: US-PFIZER INC-2014277470

PATIENT
  Age: 70 Year
  Sex: Female
  Weight: 51 kg

DRUGS (9)
  1. METOPROLOL [Concomitant]
     Active Substance: METOPROLOL
     Indication: BLOOD PRESSURE
     Dosage: UNK
  2. SPIRONOLACTONE. [Concomitant]
     Active Substance: SPIRONOLACTONE
     Dosage: UNK, 1X/DAY
  3. FUROSEMIDE. [Concomitant]
     Active Substance: FUROSEMIDE
     Dosage: 40 MG, DAILY
  4. SUTENT [Suspect]
     Active Substance: SUNITINIB MALATE
     Indication: LUNG NEOPLASM MALIGNANT
     Dosage: 37.5 MG, DAILY
     Route: 048
     Dates: start: 20140806, end: 20140818
  5. LACTULOSE. [Concomitant]
     Active Substance: LACTULOSE
     Indication: LIVER DISORDER
     Dosage: 6 DF, 2X/DAY
     Route: 048
  6. HUMALOG [Concomitant]
     Active Substance: INSULIN LISPRO
     Dosage: UNK
     Route: 058
  7. OMEPRAZOLE. [Concomitant]
     Active Substance: OMEPRAZOLE
     Indication: ABDOMINAL DISCOMFORT
     Dosage: 1 DF, 1X/DAY
  8. HYDROXYZINE [Concomitant]
     Active Substance: HYDROXYZINE\HYDROXYZINE HYDROCHLORIDE
     Indication: PRURITUS
     Dosage: UNK, 2X/DAY (TWICE AT MORNING AND AT BEDTIME)
     Route: 048
  9. LANTUS [Concomitant]
     Active Substance: INSULIN GLARGINE
     Dosage: 20 IU, DAILY (EACH NIGHT)
     Route: 058

REACTIONS (13)
  - Diarrhoea [Recovered/Resolved]
  - Activities of daily living impaired [Unknown]
  - Hypophagia [Recovered/Resolved]
  - Confusional state [Unknown]
  - Dehydration [Recovered/Resolved]
  - Fatigue [Recovered/Resolved]
  - Gait disturbance [Unknown]
  - Death [Fatal]
  - Retching [Recovered/Resolved]
  - Urinary tract infection [Recovered/Resolved]
  - Rectal haemorrhage [Recovered/Resolved]
  - Epistaxis [Unknown]
  - Dysgeusia [Recovered/Resolved]

NARRATIVE: CASE EVENT DATE: 20140808
